FAERS Safety Report 7657071-9 (Version None)
Quarter: 2011Q3

REPORT INFORMATION
  Report Type: 
  Country: None (occurrence: None)
  Receive Date: 20110804
  Receipt Date: 20100621
  Transmission Date: 20111222
  Serious: Yes (Hospitalization)
  Sender: FDA-Public Use
  Company Number: US-GLAXOSMITHKLINE-A0868228A

PATIENT
  Age: 73 Year
  Sex: Male

DRUGS (2)
  1. ATROVENT [Concomitant]
  2. ADVAIR DISKUS 100/50 [Suspect]
     Indication: EMPHYSEMA
     Dosage: 2PUFF TWICE PER DAY
     Route: 055
     Dates: start: 20100522, end: 20100620

REACTIONS (2)
  - ORAL HERPES [None]
  - PNEUMONIA [None]
